FAERS Safety Report 20961762 (Version 1)
Quarter: 2022Q2

REPORT INFORMATION
  Report Type: Spontaneous
  Country: CN (occurrence: CN)
  Receive Date: 20220615
  Receipt Date: 20220615
  Transmission Date: 20220721
  Serious: Yes (Other)
  Sender: FDA-Public Use
  Company Number: None

PATIENT
  Age: 48 Year
  Sex: Female
  Weight: 75 kg

DRUGS (5)
  1. OLANZAPINE [Suspect]
     Active Substance: OLANZAPINE
     Indication: Hallucinations, mixed
     Dosage: 10MG,BID
     Route: 048
     Dates: start: 20211221
  2. OLANZAPINE [Suspect]
     Active Substance: OLANZAPINE
     Dosage: SLOWLY INCREASED
     Route: 048
  3. OLANZAPINE [Suspect]
     Active Substance: OLANZAPINE
     Dosage: DOSE REDUCED TO 10 MG IN THE MORNING AND 7.5 MG IN THE EVENING
     Route: 048
     Dates: end: 20220531
  4. Clozapine Dispersible Tablets [Concomitant]
     Indication: Hallucinations, mixed
     Dosage: 62.5 MG ONCE DAILY
     Route: 048
     Dates: start: 20220531
  5. Clozapine Dispersible Tablets [Concomitant]
     Dosage: DOSE INCREASED TO 125 MG ONCE DAILY
     Route: 048
     Dates: end: 20220602

REACTIONS (3)
  - Gaze palsy [Recovering/Resolving]
  - Drug ineffective [Unknown]
  - Condition aggravated [Unknown]

NARRATIVE: CASE EVENT DATE: 20220531
